FAERS Safety Report 4838277-0 (Version None)
Quarter: 2005Q4

REPORT INFORMATION
  Report Type: 
  Country: None (occurrence: None)
  Receive Date: 20051128
  Receipt Date: 20051115
  Transmission Date: 20060501
  Serious: Yes (Other)
  Sender: FDA-Public Use
  Company Number: PHBS2005JP16808

PATIENT

DRUGS (2)
  1. MEXITIL [Suspect]
  2. DIOVAN [Suspect]
     Route: 048

REACTIONS (1)
  - STEVENS-JOHNSON SYNDROME [None]
